FAERS Safety Report 7634095-9 (Version None)
Quarter: 2011Q3

REPORT INFORMATION
  Report Type: 
  Country: None (occurrence: None)
  Receive Date: 20110725
  Receipt Date: 20110719
  Transmission Date: 20111222
  Serious: Yes (Other)
  Sender: FDA-Public Use
  Company Number: JP-B.I. PHARMACEUTICALS,INC./RIDGEFIELD-2011-BP-17359NB

PATIENT
  Age: 91 Year
  Sex: Male

DRUGS (7)
  1. FRANDOL S [Concomitant]
     Dosage: 40 MG
     Route: 065
  2. TORSEMIDE [Concomitant]
     Dosage: 4 MG
     Route: 065
  3. HOKUNALIN: TAPE [Concomitant]
     Dosage: 2 MG
     Route: 065
  4. SPIRIVA [Concomitant]
     Dosage: 18 MCG
  5. ALLOPURINOL [Concomitant]
     Dosage: 100 MG
     Route: 065
  6. PRADAXA [Suspect]
     Indication: ATRIAL FIBRILLATION
     Dosage: 220 MG
     Route: 048
     Dates: start: 20110413, end: 20110601
  7. OLMESARTAN MEDOXOMIL [Concomitant]
     Dosage: 20 MG
     Route: 065

REACTIONS (2)
  - HEPATIC FUNCTION ABNORMAL [None]
  - MALAISE [None]
